FAERS Safety Report 9034745 (Version 1)
Quarter: 2013Q1

REPORT INFORMATION
  Report Type: Spontaneous
  Country: US (occurrence: US)
  Receive Date: 20130128
  Receipt Date: 20130128
  Transmission Date: 20140127
  Serious: No
  Sender: FDA-Public Use
  Company Number: US-ASTRAZENECA-2013SE05332

PATIENT
  Age: 48 Year
  Sex: Female

DRUGS (2)
  1. PRILOSEC OTC [Suspect]
     Indication: GASTROOESOPHAGEAL REFLUX DISEASE
     Route: 048
  2. PRILOSEC [Suspect]
     Indication: GASTROOESOPHAGEAL REFLUX DISEASE
     Route: 048

REACTIONS (13)
  - Palpitations [Unknown]
  - Chest pain [Unknown]
  - Blood pressure increased [Unknown]
  - Anxiety [Unknown]
  - Hyperchlorhydria [Unknown]
  - Oropharyngeal pain [Unknown]
  - Chills [Unknown]
  - Hypophagia [Unknown]
  - Weight decreased [Unknown]
  - Dyspepsia [Unknown]
  - Stomatitis [Unknown]
  - Incorrect drug administration duration [Unknown]
  - Inappropriate schedule of drug administration [Unknown]
